FAERS Safety Report 9767386 (Version 3)
Quarter: 2014Q1

REPORT INFORMATION
  Report Type: Report from Study
  Country: AU (occurrence: AU)
  Receive Date: 20131217
  Receipt Date: 20140205
  Transmission Date: 20141002
  Serious: Yes (Life-Threatening, Hospitalization, Disabling, Other)
  Sender: FDA-Public Use
  Company Number: PHNR2005AU01003

PATIENT
  Age: 37 Year
  Sex: Male

DRUGS (9)
  1. CLOZARIL [Suspect]
     Dosage: 450 MG
     Dates: start: 20050126, end: 20131127
  2. OMEPRAZOLE [Concomitant]
     Dosage: 20 UKN, QD (20 UKN, MANE)
  3. DIAZEPAM [Concomitant]
     Dosage: 5 MG, BID
  4. DIAZEPAM [Concomitant]
     Dosage: 5 - 10 MG, PRN
  5. SODIUM VALPROATE [Concomitant]
     Dosage: 600 MG, BID
  6. FLUOXETINE [Concomitant]
     Dosage: 20 MG, QD (20 MG, MANE)
  7. MULTIVIT//VITAMINS NOS [Concomitant]
     Dosage: 1 DF, DAILY
  8. BENZTROPINE [Concomitant]
     Dosage: 1 - 2 MG, PRN
  9. PARACETAMOL [Concomitant]
     Dosage: 1 G, PRN/DAILY

REACTIONS (5)
  - Feeling abnormal [Unknown]
  - Psychotic disorder [Not Recovered/Not Resolved]
  - Delusions, mixed [Unknown]
  - Substance abuse [Unknown]
  - Antipsychotic drug level decreased [Unknown]
